FAERS Safety Report 7654614-6 (Version None)
Quarter: 2011Q3

REPORT INFORMATION
  Report Type: 
  Country: None (occurrence: None)
  Receive Date: 20110803
  Receipt Date: 20110727
  Transmission Date: 20111222
  Serious: Yes (Death)
  Sender: FDA-Public Use
  Company Number: NZ-GENENTECH-321244

PATIENT
  Age: 42 Year
  Sex: Female
  Weight: 63 kg

DRUGS (15)
  1. ONDANSETRON [Concomitant]
     Indication: ANTIEMETIC SUPPORTIVE CARE
     Dosage: 8 MG, UNK
     Dates: start: 20101021
  2. CHOLECALCIFEROL [Concomitant]
     Indication: PRODUCT USED FOR UNKNOWN INDICATION
     Dosage: UNK
     Dates: start: 20101021
  3. EPOGEN [Concomitant]
     Indication: PRODUCT USED FOR UNKNOWN INDICATION
     Dosage: 4000 UNK, UNK
     Route: 058
     Dates: start: 20101021
  4. MABTHERA [Suspect]
     Indication: SJOGREN'S SYNDROME
     Dosage: 1 G, 1/WEEK
     Route: 042
     Dates: start: 20101020, end: 20101020
  5. CYCLOPHOSPHAMIDE [Concomitant]
     Indication: SJOGREN'S SYNDROME
     Dosage: 500 MG, UNK
     Route: 042
     Dates: start: 20101021
  6. THIAMINE [Concomitant]
     Indication: PRODUCT USED FOR UNKNOWN INDICATION
     Dosage: UNK
     Dates: start: 20101021
  7. MESNA [Concomitant]
     Indication: PRODUCT USED FOR UNKNOWN INDICATION
     Dosage: 300 MG, UNK
     Dates: start: 20101021
  8. DOCUSATE SODIUM/SENNOSIDES [Concomitant]
     Indication: PRODUCT USED FOR UNKNOWN INDICATION
     Dosage: UNK
     Dates: start: 20101021
  9. CO-TRIMAZOLE [Concomitant]
     Indication: PRODUCT USED FOR UNKNOWN INDICATION
     Dosage: 960 MG, 3/WEEK
     Dates: start: 20101021
  10. PHENERGAN HCL [Concomitant]
     Indication: PREMEDICATION
     Dosage: 25 MG, UNK
     Route: 042
     Dates: start: 20101020
  11. MYLANTA PRODUCT NOS [Concomitant]
     Indication: PRODUCT USED FOR UNKNOWN INDICATION
     Dosage: UNK
     Dates: start: 20101021
  12. METHYLPREDNISOLONE [Concomitant]
     Indication: SJOGREN'S SYNDROME
     Dosage: 500 MG, UNK
     Route: 042
     Dates: start: 20101020
  13. ZOPICLONE [Concomitant]
     Indication: PRODUCT USED FOR UNKNOWN INDICATION
     Dosage: UNK
     Dates: start: 20101021
  14. ACETAMINOPHEN [Concomitant]
     Indication: PRODUCT USED FOR UNKNOWN INDICATION
     Dosage: UNK
     Dates: start: 20101021
  15. GAVISCON (ALGINIC ACID) [Concomitant]
     Indication: PRODUCT USED FOR UNKNOWN INDICATION
     Dosage: UNK
     Dates: start: 20101021

REACTIONS (1)
  - PNEUMONIA ASPIRATION [None]
